FAERS Safety Report 21663494 (Version 1)
Quarter: 2022Q4

REPORT INFORMATION
  Report Type: Spontaneous
  Country: FR (occurrence: FR)
  Receive Date: 20221130
  Receipt Date: 20221130
  Transmission Date: 20230112
  Serious: Yes (Other)
  Sender: FDA-Public Use
  Company Number: None

PATIENT
  Age: 62 Year
  Sex: Male
  Weight: 107 kg

DRUGS (5)
  1. NAPROXEN SODIUM [Interacting]
     Active Substance: NAPROXEN SODIUM
     Indication: Sciatica
     Dosage: 500 MG
     Route: 048
     Dates: start: 20221013, end: 20221013
  2. COLCHICINE [Interacting]
     Active Substance: COLCHICINE
     Indication: Gout
     Dosage: 20 MG, QD
     Route: 048
     Dates: start: 20221013, end: 20221013
  3. PREDNISONE [Interacting]
     Active Substance: PREDNISONE
     Indication: Sciatica
     Dosage: 20 MG, QD
     Route: 048
     Dates: start: 20221013, end: 20221013
  4. HYDROCHLOROTHIAZIDE\NEBIVOLOL HYDROCHLORIDE [Concomitant]
     Active Substance: HYDROCHLOROTHIAZIDE\NEBIVOLOL HYDROCHLORIDE
     Indication: Hypertension
     Dosage: LONG COURS
     Route: 048
  5. ALFUZOSIN [Concomitant]
     Active Substance: ALFUZOSIN
     Indication: Benign prostatic hyperplasia
     Dosage: LONG COURS
     Route: 048

REACTIONS (1)
  - Melaena [Recovered/Resolved]

NARRATIVE: CASE EVENT DATE: 20221013
